FAERS Safety Report 8521099-7 (Version None)
Quarter: 2012Q3

REPORT INFORMATION
  Report Type: 
  Country: None (occurrence: None)
  Receive Date: 20120712
  Receipt Date: 20120712
  Transmission Date: 20120928
  Serious: Yes (Other)
  Sender: FDA-Public Use
  Company Number: None

PATIENT
  Age: 32 Year
  Sex: Female
  Weight: 94.8018 kg

DRUGS (1)
  1. EPIDUO [Suspect]
     Indication: ACNE
     Dosage: PEA-SIZED ONCE DAILY TOP
     Route: 061
     Dates: start: 20120706, end: 20120709

REACTIONS (7)
  - ERYTHEMA [None]
  - BURNING SENSATION [None]
  - SKIN SWELLING [None]
  - SWELLING [None]
  - PRURITUS [None]
  - EYE SWELLING [None]
  - SPEECH DISORDER [None]
